FAERS Safety Report 9171967 (Version 1)
Quarter: 2013Q1

REPORT INFORMATION
  Report Type: Spontaneous
  Country: US (occurrence: US)
  Receive Date: 20130319
  Receipt Date: 20130319
  Transmission Date: 20140127
  Serious: Yes (Hospitalization, Other)
  Sender: FDA-Public Use
  Company Number: US-BAYER-2013-032062

PATIENT
  Age: 22 Year
  Sex: Female

DRUGS (4)
  1. YAZ [Suspect]
     Indication: CONTRACEPTION
  2. UNCODEABLE ^UNCLASSIFIABLE^ [Concomitant]
     Indication: HEADACHE
     Dosage: 2 CAPSULES AT ONCE, THEN ONE CAPSULE EVERY 4 HOURS
     Route: 048
  3. CLONAZEPAM [Concomitant]
     Dosage: 0.5 MG, 1 TABLET A DAY
     Route: 048
  4. CYCLOBENZAPRINE [Concomitant]
     Dosage: 5 MG, 1 3 TIMES A DAY

REACTIONS (5)
  - Iliac vein occlusion [Recovered/Resolved]
  - Vena cava thrombosis [Recovered/Resolved]
  - Deep vein thrombosis [None]
  - Thrombophlebitis superficial [Recovering/Resolving]
  - Deep vein thrombosis [None]
